FAERS Safety Report 7477565-9 (Version None)
Quarter: 2011Q2

REPORT INFORMATION
  Report Type: 
  Country: None (occurrence: None)
  Receive Date: 20110513
  Receipt Date: 20110428
  Transmission Date: 20111010
  Serious: Yes (Other)
  Sender: FDA-Public Use
  Company Number: US-JNJFOC-20110502289

PATIENT
  Sex: Male
  Weight: 68.95 kg

DRUGS (4)
  1. EMTRICITABINE/TENOFOVIR DISOPROXIL FUMARATE [Concomitant]
     Indication: HIV INFECTION
     Route: 048
  2. RITONAVIR [Concomitant]
     Indication: HIV INFECTION
     Route: 048
  3. DOXIL [Suspect]
     Indication: KAPOSI'S SARCOMA
     Route: 042
  4. TMC114 [Concomitant]
     Indication: HIV INFECTION
     Route: 048

REACTIONS (3)
  - OESOPHAGEAL CANDIDIASIS [None]
  - CANDIDIASIS [None]
  - KAPOSI'S SARCOMA [None]
